FAERS Safety Report 25123283 (Version 1)
Quarter: 2025Q1

REPORT INFORMATION
  Report Type: Spontaneous
  Country: US (occurrence: US)
  Receive Date: 20250326
  Receipt Date: 20250326
  Transmission Date: 20250408
  Serious: No
  Sender: SANOFI AVENTIS
  Company Number: US-SA-2025SA086894

PATIENT
  Age: 69 Year
  Sex: Male
  Weight: 80 kg

DRUGS (22)
  1. DUPIXENT [Suspect]
     Active Substance: DUPILUMAB
     Indication: Asthma
     Dosage: 300 MG, QOW
     Route: 058
     Dates: end: 202503
  2. DUPIXENT [Suspect]
     Active Substance: DUPILUMAB
     Indication: Chronic obstructive pulmonary disease
  3. ATROVENT HFA [Concomitant]
     Active Substance: IPRATROPIUM BROMIDE
  4. HYOSCYAMINE SULFATE [Concomitant]
     Active Substance: HYOSCYAMINE SULFATE
  5. COMBIVENT RESPIMAT [Concomitant]
     Active Substance: ALBUTEROL SULFATE\IPRATROPIUM BROMIDE
  6. TESTOSTERONE [Concomitant]
     Active Substance: TESTOSTERONE
  7. BUDESONIDE\FORMOTEROL FUMARATE [Concomitant]
     Active Substance: BUDESONIDE\FORMOTEROL FUMARATE
  8. PREDNISONE [Concomitant]
     Active Substance: PREDNISONE
  9. TRAMADOL HCL [Concomitant]
     Active Substance: TRAMADOL HYDROCHLORIDE
  10. ALBUTEROL SULFATE [Concomitant]
     Active Substance: ALBUTEROL SULFATE
  11. AMLODIPINE BESYLATE [Concomitant]
     Active Substance: AMLODIPINE BESYLATE
  12. ACETAMINOPHEN\HYDROCODONE [Concomitant]
     Active Substance: ACETAMINOPHEN\HYDROCODONE
  13. LOSARTAN POTASSIUM [Concomitant]
     Active Substance: LOSARTAN POTASSIUM
  14. MELOXICAM [Concomitant]
     Active Substance: MELOXICAM
  15. ALBUTEROL\IPRATROPIUM [Concomitant]
     Active Substance: ALBUTEROL\IPRATROPIUM
  16. METHOCARBAMOL [Concomitant]
     Active Substance: METHOCARBAMOL
  17. AZITHROMYCIN [Concomitant]
     Active Substance: AZITHROMYCIN
  18. ROFLUMILAST [Concomitant]
     Active Substance: ROFLUMILAST
  19. SIMVASTATIN [Concomitant]
     Active Substance: SIMVASTATIN
  20. MOMETASONE FUROATE [Concomitant]
     Active Substance: MOMETASONE FUROATE
  21. PANTOPRAZOLE SODIUM [Concomitant]
     Active Substance: PANTOPRAZOLE SODIUM
  22. SENNA [Concomitant]
     Active Substance: SENNOSIDES

REACTIONS (8)
  - Pain in extremity [Recovering/Resolving]
  - Swelling [Recovering/Resolving]
  - Pyrexia [Recovering/Resolving]
  - Urticaria [Recovering/Resolving]
  - Pruritus [Recovering/Resolving]
  - Conjunctivitis [Recovering/Resolving]
  - Injection site pain [Unknown]
  - Rash [Recovering/Resolving]

NARRATIVE: CASE EVENT DATE: 20250301
